FAERS Safety Report 13215529 (Version 1)
Quarter: 2017Q1

REPORT INFORMATION
  Report Type: Spontaneous
  Country: US (occurrence: US)
  Receive Date: 20170210
  Receipt Date: 20170210
  Transmission Date: 20170428
  Serious: No
  Sender: FDA-Public Use
  Company Number: US-ROCHE-1799587

PATIENT
  Age: 37 Year
  Sex: Female
  Weight: 122.9 kg

DRUGS (5)
  1. ZYRTEC [Concomitant]
     Active Substance: CETIRIZINE HYDROCHLORIDE
     Route: 065
  2. XOLAIR [Suspect]
     Active Substance: OMALIZUMAB
     Indication: CHRONIC SPONTANEOUS URTICARIA
     Route: 058
     Dates: start: 20160401
  3. DOXEPIN [Concomitant]
     Active Substance: DOXEPIN
  4. PREDNISONE. [Concomitant]
     Active Substance: PREDNISONE
     Dosage: INITIALLY HIGH DOSES
     Route: 065
  5. XOLAIR [Suspect]
     Active Substance: OMALIZUMAB
     Dosage: MOST RECENT DOSE
     Route: 058
     Dates: start: 20160708

REACTIONS (1)
  - Alopecia [Not Recovered/Not Resolved]

NARRATIVE: CASE EVENT DATE: 20160401
